FAERS Safety Report 6900538-9 (Version None)
Quarter: 2010Q3

REPORT INFORMATION
  Report Type: 
  Country: None (occurrence: None)
  Receive Date: 20100730
  Receipt Date: 20100726
  Transmission Date: 20110219
  Serious: Yes (Other)
  Sender: FDA-Public Use
  Company Number: AMI0023224

PATIENT

DRUGS (4)
  1. TIMOLOL MALEATE [Suspect]
     Indication: GLAUCOMA
     Dosage: 2 DROPS DAILY -046
     Dates: end: 20100625
  2. TIMOLOL MALEATE [Suspect]
     Dosage: 2 DROPS DAILY - 046
     Dates: start: 20100713
  3. ATHYMIL [Concomitant]
  4. TOBRADEX [Concomitant]

REACTIONS (2)
  - CATARACT [None]
  - NIGHTMARE [None]
